FAERS Safety Report 11961521 (Version 2)
Quarter: 2016Q1

REPORT INFORMATION
  Report Type: Report from Study
  Country: US (occurrence: US)
  Receive Date: 20160126
  Receipt Date: 20160202
  Transmission Date: 20160526
  Serious: No
  Sender: FDA-Public Use
  Company Number: US-ABBVIE-15K-163-1360856-00

PATIENT
  Age: 15 Year
  Sex: Female
  Weight: 58.11 kg

DRUGS (2)
  1. ALBUTEROL. [Concomitant]
     Active Substance: ALBUTEROL
     Indication: ASTHMA
     Route: 055
  2. HUMIRA [Suspect]
     Active Substance: ADALIMUMAB
     Indication: CROHN^S DISEASE
     Route: 058
     Dates: start: 201312

REACTIONS (5)
  - Ear pain [Unknown]
  - Cough [Unknown]
  - Sinusitis [Unknown]
  - Ear infection [Unknown]
  - Chest pain [Unknown]

NARRATIVE: CASE EVENT DATE: 201502
